FAERS Safety Report 9555318 (Version 2)
Quarter: 2013Q3

REPORT INFORMATION
  Report Type: Spontaneous
  Country: PT (occurrence: PT)
  Receive Date: 20130926
  Receipt Date: 20130926
  Transmission Date: 20140515
  Serious: Yes (Hospitalization, Other)
  Sender: FDA-Public Use
  Company Number: PT-ROCHE-1270205

PATIENT
  Sex: Female

DRUGS (2)
  1. XOLAIR [Suspect]
     Indication: PRODUCT USED FOR UNKNOWN INDICATION
     Route: 065
     Dates: start: 200707, end: 201210
  2. XOLAIR [Suspect]
     Route: 065
     Dates: start: 20121015

REACTIONS (3)
  - Breast cancer [Not Recovered/Not Resolved]
  - Asthmatic crisis [Recovered/Resolved]
  - Alopecia [Recovered/Resolved]
